FAERS Safety Report 12904246 (Version 1)
Quarter: 2016Q4

REPORT INFORMATION
  Report Type: Spontaneous
  Country: US (occurrence: US)
  Receive Date: 20161101
  Receipt Date: 20161101
  Transmission Date: 20170207
  Serious: No
  Sender: FDA-Public Use
  Company Number: None

PATIENT
  Age: 73 Year
  Sex: Male
  Weight: 63.5 kg

DRUGS (1)
  1. CEFTRIAXONE. [Suspect]
     Active Substance: CEFTRIAXONE
     Indication: TUBULOINTERSTITIAL NEPHRITIS
     Route: 042
     Dates: start: 20160819

REACTIONS (3)
  - Nephritis [None]
  - Blood urea increased [None]
  - Blood creatine increased [None]

NARRATIVE: CASE EVENT DATE: 20160819
